FAERS Safety Report 18231989 (Version 1)
Quarter: 2020Q3

REPORT INFORMATION
  Report Type: Spontaneous
  Country: US (occurrence: US)
  Receive Date: 20200903
  Receipt Date: 20200903
  Transmission Date: 20201103
  Serious: Yes (Life-Threatening, Disabling)
  Sender: FDA-Public Use
  Company Number: None

PATIENT
  Age: 46 Year
  Sex: Female
  Weight: 60.75 kg

DRUGS (2)
  1. CLONAZEPAM. [Suspect]
     Active Substance: CLONAZEPAM
     Indication: PANIC REACTION
     Dosage: ?
     Route: 048
     Dates: start: 20191101, end: 20200104
  2. CLONAZEPAM. [Suspect]
     Active Substance: CLONAZEPAM
     Indication: ANXIETY
     Dosage: ?
     Route: 048
     Dates: start: 20191101, end: 20200104

REACTIONS (9)
  - Dyspepsia [None]
  - Near death experience [None]
  - Withdrawal syndrome [None]
  - Heart rate irregular [None]
  - Dysphagia [None]
  - Brain injury [None]
  - Quality of life decreased [None]
  - Autonomic neuropathy [None]
  - Respiratory disorder [None]

NARRATIVE: CASE EVENT DATE: 20200701
